FAERS Safety Report 8300560-4 (Version None)
Quarter: 2012Q2

REPORT INFORMATION
  Report Type: 
  Country: None (occurrence: None)
  Receive Date: 20120418
  Receipt Date: 20120418
  Transmission Date: 20120825
  Serious: Yes (Other)
  Sender: FDA-Public Use
  Company Number: None

PATIENT
  Age: 53 Year
  Sex: Female

DRUGS (1)
  1. ASACOL HD [Suspect]
     Indication: PROCTITIS
     Dosage: 2 TABS QAM AND 2 TABS QPM
     Dates: start: 20111001, end: 20120101

REACTIONS (5)
  - PAIN IN EXTREMITY [None]
  - ARTHRALGIA [None]
  - SINUSITIS [None]
  - BACK PAIN [None]
  - TINNITUS [None]
